FAERS Safety Report 4755442-1 (Version None)
Quarter: 2005Q3

REPORT INFORMATION
  Report Type: 
  Country: None (occurrence: None)
  Receive Date: 20050826
  Receipt Date: 20050826
  Transmission Date: 20060218
  Serious: No
  Sender: FDA-Public Use
  Company Number: None

PATIENT
  Age: 18 Year
  Sex: Male
  Weight: 72.5755 kg

DRUGS (2)
  1. CORICIDIN [Suspect]
     Indication: DRUG USE FOR UNKNOWN INDICATION
     Dosage: UP TO 60/ TIME ORAL
     Route: 048
  2. NARCOTIC AGONIST ANALGESIC [Concomitant]

REACTIONS (6)
  - ANGER [None]
  - INTENTIONAL MISUSE [None]
  - PHYSICAL ASSAULT [None]
  - PSYCHOMOTOR HYPERACTIVITY [None]
  - SEXUAL OFFENCE [None]
  - THEFT [None]
